FAERS Safety Report 25366364 (Version 1)
Quarter: 2025Q2

REPORT INFORMATION
  Report Type: Spontaneous
  Country: US (occurrence: US)
  Receive Date: 20250528
  Receipt Date: 20250528
  Transmission Date: 20250717
  Serious: No
  Sender: STALLERGENES
  Company Number: US-STALCOR-2025-AER-01059

PATIENT
  Age: 11 Year
  Sex: Male

DRUGS (3)
  1. PALFORZIA [Suspect]
     Active Substance: PEANUT
     Indication: Food allergy
     Dosage: 300MG: MAINTENANCE DOSE: MIX CONTENTS OF ONE SACHET WELL WITH SEMISOLID FOOD AS DIRECTED AND CONSUME
     Route: 048
     Dates: start: 202410
  2. PALFORZIA [Suspect]
     Active Substance: PEANUT
     Dosage: REACTIVE DOSE ?300MG: MAINTENANCE DOSE: THE LAST DISPENSE WAS ON 14-MAR-2025 FOR PALFORZIA 300MG. LO
     Route: 048
     Dates: start: 202503
  3. OSELTAMIVIR [Concomitant]
     Active Substance: OSELTAMIVIR
     Indication: Product used for unknown indication

REACTIONS (2)
  - Illness [Unknown]
  - Product dose omission issue [Unknown]
